FAERS Safety Report 7415627-2 (Version None)
Quarter: 2011Q2

REPORT INFORMATION
  Report Type: 
  Country: None (occurrence: None)
  Receive Date: 20110414
  Receipt Date: 20110414
  Transmission Date: 20111010
  Serious: No
  Sender: FDA-Public Use
  Company Number: US-JNJFOC-20110206802

PATIENT
  Sex: Male
  Weight: 102.06 kg

DRUGS (4)
  1. DURAGESIC [Suspect]
     Indication: NECK PAIN
     Route: 062
  2. FENTANYL-100 [Suspect]
     Indication: BACK PAIN
     Route: 065
  3. FENTANYL-100 [Suspect]
     Indication: NECK PAIN
     Route: 065
  4. DURAGESIC [Suspect]
     Indication: BACK PAIN
     Route: 062

REACTIONS (2)
  - WRONG TECHNIQUE IN DRUG USAGE PROCESS [None]
  - INCORRECT DRUG ADMINISTRATION DURATION [None]
